FAERS Safety Report 6971697-7 (Version None)
Quarter: 2010Q3

REPORT INFORMATION
  Report Type: 
  Country: None (occurrence: None)
  Receive Date: 20100908
  Receipt Date: 20100104
  Transmission Date: 20110219
  Serious: No
  Sender: FDA-Public Use
  Company Number: US-PFIZER INC-2010002452

PATIENT
  Sex: Female
  Weight: 65.76 kg

DRUGS (3)
  1. NARDIL [Suspect]
     Indication: ANXIETY
     Route: 048
     Dates: start: 19940101
  2. CLORAZEPATE DIPOTASSIUM [Concomitant]
     Dosage: 3.25 MG, 1X/DAY
     Dates: start: 20060101
  3. OXYBUTYNIN [Concomitant]
     Indication: HYPERTONIC BLADDER
     Dosage: 2.5 MG, 1X/DAY

REACTIONS (1)
  - NASOPHARYNGITIS [None]
